FAERS Safety Report 7018565-2 (Version None)
Quarter: 2010Q3

REPORT INFORMATION
  Report Type: 
  Country: None (occurrence: None)
  Receive Date: 20100924
  Receipt Date: 20100914
  Transmission Date: 20110219
  Serious: Yes (Hospitalization)
  Sender: FDA-Public Use
  Company Number: 1000016353

PATIENT
  Age: 88 Year
  Sex: Female

DRUGS (7)
  1. MEMANTINE HCL [Suspect]
     Indication: DEMENTIA
     Dosage: 5 MG (5 MG, 1 IN 1 D), ORAL
     Route: 048
     Dates: start: 20100114, end: 20100120
  2. DESLORATADINE [Concomitant]
  3. ATARAX [Concomitant]
  4. LUDIOMIL (MAPROTILINE MESILATE) (75 MILLIGRAM) (MAPROTILINE MESILATE) [Concomitant]
  5. STEROGYL (ERGOCALCIFEROL) (DROPS (FOR ORAL USE)) (ERGOCALCIFEROL) [Concomitant]
  6. DOLIPRANE (PARACETAMOL) (500 MILLIGRAM, TABLETS) (PARACETAMOL) [Concomitant]
  7. FORLAX (MACROGOL) (MACROGOL) [Concomitant]

REACTIONS (4)
  - ERYTHEMA [None]
  - PRURITUS [None]
  - SKIN LESION [None]
  - SUPERINFECTION [None]
